FAERS Safety Report 13068060 (Version 1)
Quarter: 2016Q4

REPORT INFORMATION
  Report Type: Spontaneous
  Country: US (occurrence: US)
  Receive Date: 20161227
  Receipt Date: 20161227
  Transmission Date: 20170207
  Serious: No
  Sender: FDA-Public Use
  Company Number: None

PATIENT
  Age: 23 Year
  Sex: Male
  Weight: 108.05 kg

DRUGS (1)
  1. DULOXETINE 60MG [Suspect]
     Active Substance: DULOXETINE

REACTIONS (4)
  - Nausea [None]
  - Dizziness [None]
  - Vomiting [None]
  - Hyperhidrosis [None]

NARRATIVE: CASE EVENT DATE: 20161021
